FAERS Safety Report 6835213-2 (Version None)
Quarter: 2010Q3

REPORT INFORMATION
  Report Type: 
  Country: None (occurrence: None)
  Receive Date: 20100713
  Receipt Date: 20100709
  Transmission Date: 20110219
  Serious: Yes (Other)
  Sender: FDA-Public Use
  Company Number: US-ASTRAZENECA-2007UW08935

PATIENT
  Age: 48 Year
  Sex: Male
  Weight: 86.2 kg

DRUGS (6)
  1. SEROQUEL [Suspect]
     Indication: MENTAL DISORDER
     Dosage: 25 MG TO 100 MG
     Route: 048
     Dates: start: 19900101, end: 20090201
  2. SEROQUEL [Suspect]
     Indication: INSOMNIA
     Dosage: 25 MG TO 100 MG
     Route: 048
     Dates: start: 19900101, end: 20090201
  3. SEROQUEL [Suspect]
     Dosage: 25 MG TO 100 MG
     Route: 048
     Dates: start: 19900101, end: 20090201
  4. PROZAC [Concomitant]
     Indication: SCHIZOPHRENIA
  5. PROZAC [Concomitant]
     Indication: BIPOLAR DISORDER
  6. PROZAC [Concomitant]
     Indication: DEPRESSION

REACTIONS (2)
  - BLINDNESS [None]
  - TYPE 2 DIABETES MELLITUS [None]
